FAERS Safety Report 14180594 (Version 3)
Quarter: 2018Q1

REPORT INFORMATION
  Report Type: Spontaneous
  Country: US (occurrence: US)
  Receive Date: 20171110
  Receipt Date: 20180125
  Transmission Date: 20180508
  Serious: Yes (Other)
  Sender: FDA-Public Use
  Company Number: US-ALLERGAN-1764668US

PATIENT
  Age: 62 Year
  Sex: Female

DRUGS (3)
  1. REFRESH P.M. [Suspect]
     Active Substance: MINERAL OIL\PETROLATUM
     Indication: DRY EYE
  2. REFRESH P.M. [Suspect]
     Active Substance: MINERAL OIL\PETROLATUM
     Indication: DRY SKIN
  3. REFRESH P.M. [Suspect]
     Active Substance: MINERAL OIL\PETROLATUM
     Indication: EYE LUBRICATION THERAPY
     Dosage: QD, BID, QHS
     Route: 047
     Dates: start: 2015

REACTIONS (2)
  - Retinal detachment [Recovering/Resolving]
  - Off label use [Unknown]
